FAERS Safety Report 19454912 (Version 1)
Quarter: 2021Q2

REPORT INFORMATION
  Report Type: Spontaneous
  Country: CA (occurrence: CA)
  Receive Date: 20210623
  Receipt Date: 20210623
  Transmission Date: 20210717
  Serious: Yes (Other)
  Sender: FDA-Public Use
  Company Number: CA-PFIZER INC-2021701077

PATIENT
  Age: 66 Year
  Sex: Male
  Weight: 83 kg

DRUGS (9)
  1. VYNDAQEL [Suspect]
     Active Substance: TAFAMIDIS MEGLUMINE
     Indication: CARDIAC AMYLOIDOSIS
     Dosage: 80 MG, 1X/DAY
     Route: 048
     Dates: start: 20201021
  2. ZINC. [Concomitant]
     Active Substance: ZINC
     Dosage: 1 DF DOSAGE INFORMATION NOT AVAILABLE
     Route: 065
  3. FUROSEMIDE. [Concomitant]
     Active Substance: FUROSEMIDE
     Dosage: 40 MG, 1X/DAY
     Route: 065
  4. DOXYCYCLINE. [Concomitant]
     Active Substance: DOXYCYCLINE
     Dosage: 100 MG, 2X/DAY
     Route: 065
  5. K?DUR [Concomitant]
     Active Substance: POTASSIUM CHLORIDE
     Dosage: 20 MEQ, 1X/DAY (MILLEQUIVALENT)
     Route: 065
  6. URSODIOL. [Concomitant]
     Active Substance: URSODIOL
     Dosage: 250 MG, 3X/DAY
     Route: 065
  7. CIALIS [Concomitant]
     Active Substance: TADALAFIL
     Dosage: 20 MG, AS NEEDED
     Route: 065
  8. BCG [Concomitant]
     Active Substance: BCG VACCINE
     Indication: BLADDER CANCER
     Dosage: 1 DF DOSAGE INFORMATION NOT AVAILABLE
     Route: 042
  9. ELIQUIS [Concomitant]
     Active Substance: APIXABAN
     Dosage: 5 MG, 2X/DAY (5 MG EVERY 12HOUR)
     Route: 065

REACTIONS (11)
  - Left ventricular hypertrophy [Unknown]
  - Mitral valve incompetence [Unknown]
  - Weight increased [Unknown]
  - Dizziness postural [Unknown]
  - Ejection fraction decreased [Unknown]
  - Left ventricular dysfunction [Unknown]
  - Mitral valve calcification [Unknown]
  - Diastolic dysfunction [Unknown]
  - Aortic valve incompetence [Unknown]
  - Orthostatic hypotension [Recovered/Resolved]
  - Blood pressure increased [Unknown]

NARRATIVE: CASE EVENT DATE: 20210409
